FAERS Safety Report 5636026-X (Version None)
Quarter: 2008Q1

REPORT INFORMATION
  Report Type: 
  Country: None (occurrence: None)
  Receive Date: 20080220
  Receipt Date: 20080220
  Transmission Date: 20080703
  Serious: Yes (Hospitalization)
  Sender: FDA-Public Use
  Company Number: None

PATIENT
  Age: 35 Year
  Sex: Female
  Weight: 66.2252 kg

DRUGS (1)
  1. LYBREL [Suspect]
     Dosage: 1 PILL 1 PER DAY PO
     Route: 048
     Dates: start: 20071201, end: 20080212

REACTIONS (1)
  - PULMONARY EMBOLISM [None]
